FAERS Safety Report 4825543-8 (Version None)
Quarter: 2005Q4

REPORT INFORMATION
  Report Type: 
  Country: None (occurrence: None)
  Receive Date: 20051111
  Receipt Date: 20050826
  Transmission Date: 20060501
  Serious: No
  Sender: FDA-Public Use
  Company Number: US-GLAXOSMITHKLINE-A0571974A

PATIENT
  Age: 72 Year
  Sex: Male

DRUGS (6)
  1. AVODART [Suspect]
     Indication: BENIGN PROSTATIC HYPERPLASIA
     Dosage: 1CAP PER DAY
     Route: 048
     Dates: start: 20050516
  2. TERAZOSIN [Concomitant]
  3. DIGOXIN [Concomitant]
  4. COREG [Concomitant]
  5. WARFARIN [Concomitant]
  6. ALTACE [Concomitant]

REACTIONS (4)
  - DRUG INEFFECTIVE [None]
  - DYSPHAGIA [None]
  - INCORRECT ROUTE OF DRUG ADMINISTRATION [None]
  - ORAL DISCOMFORT [None]
